FAERS Safety Report 8305886-6 (Version None)
Quarter: 2012Q2

REPORT INFORMATION
  Report Type: 
  Country: None (occurrence: None)
  Receive Date: 20120418
  Receipt Date: 20120405
  Transmission Date: 20120825
  Serious: Yes (Other)
  Sender: FDA-Public Use
  Company Number: CA-008181

PATIENT
  Age: 57 Year
  Sex: Male

DRUGS (1)
  1. FIRMAGON [Suspect]
     Indication: PRODUCT USED FOR UNKNOWN INDICATION
     Dates: start: 20120405, end: 20120405

REACTIONS (5)
  - UNRESPONSIVE TO STIMULI [None]
  - HYPOTENSION [None]
  - DYSKINESIA [None]
  - NERVOUSNESS [None]
  - HYPERHIDROSIS [None]
